FAERS Safety Report 6062171-3 (Version None)
Quarter: 2009Q1

REPORT INFORMATION
  Report Type: 
  Country: None (occurrence: None)
  Receive Date: 20090202
  Receipt Date: 20090202
  Transmission Date: 20090719
  Serious: Yes (Other)
  Sender: FDA-Public Use
  Company Number: None

PATIENT
  Sex: Female
  Weight: 83.0083 kg

DRUGS (1)
  1. KEPPRA [Suspect]
     Dosage: 500 MG 1 BID ORAL
     Route: 048

REACTIONS (5)
  - CLUMSINESS [None]
  - COORDINATION ABNORMAL [None]
  - FALL [None]
  - PRODUCT QUALITY ISSUE [None]
  - SOMNOLENCE [None]
